FAERS Safety Report 13336613 (Version 1)
Quarter: 2017Q1

REPORT INFORMATION
  Report Type: Report from Study
  Country: US (occurrence: US)
  Receive Date: 20170314
  Receipt Date: 20170314
  Transmission Date: 20170428
  Serious: Yes (Hospitalization, Other)
  Sender: FDA-Public Use
  Company Number: US-JAZZ-2016-US-024878

PATIENT
  Age: 49 Year
  Sex: Female

DRUGS (15)
  1. XYREM [Suspect]
     Active Substance: SODIUM OXYBATE
     Indication: CATAPLEXY
     Dosage: DOSE ADJUSTMENTS
     Route: 048
     Dates: start: 201612, end: 201701
  2. PRAZOSIN [Suspect]
     Active Substance: PRAZOSIN
     Indication: SLEEP TERROR
  3. DOXEPIN [Concomitant]
     Active Substance: DOXEPIN
  4. FIORICET [Concomitant]
     Active Substance: ACETAMINOPHEN\BUTALBITAL\CAFFEINE
  5. XYREM [Suspect]
     Active Substance: SODIUM OXYBATE
     Indication: NARCOLEPSY
     Dosage: 2.25 G, BID
     Route: 048
     Dates: start: 20161228, end: 201612
  6. FETZIMA [Concomitant]
     Active Substance: LEVOMILNACIPRAN HYDROCHLORIDE
  7. LAMICTAL [Concomitant]
     Active Substance: LAMOTRIGINE
  8. RITALIN [Concomitant]
     Active Substance: METHYLPHENIDATE HYDROCHLORIDE
     Indication: NARCOLEPSY
  9. XYREM [Suspect]
     Active Substance: SODIUM OXYBATE
     Dosage: 3.75 G, QD (FIRST DOSE)
     Route: 048
     Dates: start: 201701
  10. PRAZOSIN [Suspect]
     Active Substance: PRAZOSIN
     Indication: PRODUCT USED FOR UNKNOWN INDICATION
  11. BUSPIRONE [Concomitant]
     Active Substance: BUSPIRONE HYDROCHLORIDE
     Indication: PANIC ATTACK
  12. XYREM [Suspect]
     Active Substance: SODIUM OXYBATE
     Dosage: 3 G, QD (SECOND DOSE)
     Route: 048
     Dates: start: 201701
  13. PRAZOSIN [Suspect]
     Active Substance: PRAZOSIN
     Indication: SLEEP TERROR
  14. HYDROCORTISONE. [Concomitant]
     Active Substance: HYDROCORTISONE
  15. PRAMIPEXOLE. [Concomitant]
     Active Substance: PRAMIPEXOLE

REACTIONS (18)
  - Heart rate increased [Unknown]
  - Peripheral swelling [Recovering/Resolving]
  - Feeling abnormal [Unknown]
  - Tendon injury [Not Recovered/Not Resolved]
  - Pruritus [Unknown]
  - Formication [Unknown]
  - Fatigue [Unknown]
  - Tremor [Unknown]
  - Weight decreased [Unknown]
  - Pollakiuria [Unknown]
  - Oral herpes [Unknown]
  - Food allergy [Unknown]
  - Tendonitis [Unknown]
  - Chest pain [Unknown]
  - Pain in extremity [Unknown]
  - Hypertension [Recovering/Resolving]
  - Stress [Unknown]
  - Somnolence [Unknown]

NARRATIVE: CASE EVENT DATE: 201612
